FAERS Safety Report 5912149-2 (Version None)
Quarter: 2008Q4

REPORT INFORMATION
  Report Type: 
  Country: None (occurrence: None)
  Receive Date: 20081003
  Receipt Date: 20081003
  Transmission Date: 20090506
  Serious: Yes (Hospitalization)
  Sender: FDA-Public Use
  Company Number: None

PATIENT
  Age: 77 Year
  Sex: Male
  Weight: 106.68 kg

DRUGS (2)
  1. ASPIRIN [Suspect]
     Dosage: 81 MG EVERY DAY PO
     Route: 048
     Dates: start: 20080216, end: 20080916
  2. WARFARIN SODIUM [Suspect]
     Dates: start: 20080812, end: 20080916

REACTIONS (2)
  - HAEMATURIA [None]
  - URINARY TRACT OBSTRUCTION [None]
